FAERS Safety Report 6657321-1 (Version None)
Quarter: 2010Q1

REPORT INFORMATION
  Report Type: 
  Country: None (occurrence: None)
  Receive Date: 20100330
  Receipt Date: 20100322
  Transmission Date: 20100710
  Serious: Yes (Disabling, Other)
  Sender: FDA-Public Use
  Company Number: US-BRISTOL-MYERS SQUIBB COMPANY-15030869

PATIENT
  Age: 60 Year
  Sex: Female

DRUGS (5)
  1. CYTOXAN [Suspect]
     Indication: MULTIPLE MYELOMA
     Dosage: DAY 1 AND 8 EVERY 21 DAYS TAKEN AS CONMED ALSO
     Route: 042
  2. REVLIMID [Suspect]
     Indication: MULTIPLE MYELOMA
     Dosage: 8DAYS;INTERRUPTED ON 04JAN2010
     Route: 048
     Dates: start: 20091227
  3. VELCADE [Suspect]
     Dosage: DAY 1 AND 8 EVERY 21DAYS TAKEN AS CONMED ALSO
     Route: 042
  4. DECADRON [Suspect]
     Dosage: DAY1 AND 8 TAKEN AS CONMED ALSO
     Route: 042
  5. CHEMOTHERAPY [Suspect]
     Dosage: ON 26JAN10
     Route: 042
     Dates: start: 20100119

REACTIONS (7)
  - ASTHENIA [None]
  - BLOOD POTASSIUM DECREASED [None]
  - DIZZINESS [None]
  - NEUTROPENIA [None]
  - PLATELET COUNT DECREASED [None]
  - PRESYNCOPE [None]
  - VISION BLURRED [None]
